FAERS Safety Report 7172161-5 (Version None)
Quarter: 2010Q4

REPORT INFORMATION
  Report Type: 
  Country: None (occurrence: None)
  Receive Date: 20101217
  Receipt Date: 20100322
  Transmission Date: 20110411
  Serious: Yes (Other)
  Sender: FDA-Public Use
  Company Number: US-AMGEN-QUU389896

PATIENT

DRUGS (5)
  1. ENBREL [Suspect]
     Indication: RHEUMATOID ARTHRITIS
     Dosage: 50 MG, QWK
     Dates: start: 20050817
  2. METHOTREXATE [Concomitant]
     Dosage: 10 MG, QWK
     Dates: start: 20050512
  3. DICLOFENAC SODIUM/MISOPROSTOL [Concomitant]
     Dosage: UNK UNK, UNK
     Dates: start: 20050512
  4. CETIRIZINE HYDROCHLORIDE [Concomitant]
     Dosage: UNK UNK, UNK
  5. LEFLUNOMIDE [Concomitant]
     Dosage: 20 MG, UNK
     Dates: start: 20010101, end: 20050101

REACTIONS (2)
  - MALIGNANT MELANOMA [None]
  - SQUAMOUS CELL CARCINOMA [None]
